FAERS Safety Report 11279141 (Version 1)
Quarter: 2015Q3

REPORT INFORMATION
  Report Type: Spontaneous
  Country: US (occurrence: US)
  Receive Date: 20150717
  Receipt Date: 20150717
  Transmission Date: 20151125
  Serious: No
  Sender: FDA-Public Use
  Company Number: US-MYLANLABS-2015M1013854

PATIENT
  Sex: Female
  Weight: 58.5 kg

DRUGS (5)
  1. PROGESTERON [Concomitant]
     Indication: OSTEOPOROSIS
     Dosage: 25 MG, QD
     Dates: start: 2014
  2. EFFEXOR [Concomitant]
     Active Substance: VENLAFAXINE HYDROCHLORIDE
     Indication: DEPRESSION
     Dosage: 37.5 MG, QD
     Route: 048
     Dates: start: 2005
  3. ESTRADIOL. [Suspect]
     Active Substance: ESTRADIOL
     Indication: OSTEOPOROSIS
     Dosage: 0.025 MG, QD 1/2 PATCH, CHANGED TW
     Route: 062
     Dates: start: 201412
  4. ESTRADIOL. [Suspect]
     Active Substance: ESTRADIOL
     Dosage: 0.025 MG QD CHANGED TW
     Route: 062
     Dates: start: 2014, end: 201412
  5. SYNTHROID [Concomitant]
     Active Substance: LEVOTHYROXINE SODIUM
     Dosage: 25 ?G, QD
     Dates: start: 2011

REACTIONS (4)
  - Fungal infection [Recovered/Resolved]
  - Abdominal distension [Recovered/Resolved]
  - Irritability [Recovered/Resolved]
  - Therapeutic response unexpected [Not Recovered/Not Resolved]

NARRATIVE: CASE EVENT DATE: 201411
